FAERS Safety Report 7871873-5 (Version None)
Quarter: 2011Q4

REPORT INFORMATION
  Report Type: 
  Country: None (occurrence: None)
  Receive Date: 20111029
  Receipt Date: 20110309
  Transmission Date: 20120403
  Serious: No
  Sender: FDA-Public Use
  Company Number: US-AMGEN-USASP2011013223

PATIENT
  Sex: Female
  Weight: 53.515 kg

DRUGS (11)
  1. CALCIUM 600 + D [Concomitant]
  2. COQ10 [Concomitant]
     Dosage: 100 MG, UNK
  3. ENBREL [Suspect]
     Indication: PRODUCT USED FOR UNKNOWN INDICATION
     Dosage: 25 MG, 2 TIMES/WK
     Route: 058
  4. VITAMIN C                          /00008001/ [Concomitant]
     Dosage: 500 MG, UNK
  5. MAG-OX [Concomitant]
     Dosage: 400 MG, UNK
  6. VITAMIN E                          /00110501/ [Concomitant]
     Dosage: 400 UNIT, UNK
  7. LIPITOR [Concomitant]
     Dosage: 20 MG, UNK
  8. LEFLUNOMIDE [Concomitant]
     Dosage: 20 MG, UNK
  9. LEVOTHYROXINE SODIUM [Concomitant]
     Dosage: 50 A?G, UNK
  10. NEXIUM [Concomitant]
     Dosage: 40 MG, UNK
  11. FISH OIL [Concomitant]

REACTIONS (2)
  - NASOPHARYNGITIS [None]
  - WEIGHT DECREASED [None]
